FAERS Safety Report 12059998 (Version 4)
Quarter: 2016Q2

REPORT INFORMATION
  Report Type: Spontaneous
  Country: FR (occurrence: FR)
  Receive Date: 20160210
  Receipt Date: 20160418
  Transmission Date: 20160815
  Serious: Yes (Other)
  Sender: FDA-Public Use
  Company Number: FR-TEVA-634084ISR

PATIENT
  Age: 58 Year
  Sex: Female

DRUGS (7)
  1. NAPROXEN. [Suspect]
     Active Substance: NAPROXEN
     Route: 065
  2. NAPROXEN. [Suspect]
     Active Substance: NAPROXEN
  3. OXAZEPAM. [Suspect]
     Active Substance: OXAZEPAM
     Route: 065
  4. CITALOPRAM [Concomitant]
     Active Substance: CITALOPRAM HYDROBROMIDE
     Route: 065
  5. ZOPICLONE [Suspect]
     Active Substance: ZOPICLONE
     Route: 065
  6. ACEBUTOLOL [Concomitant]
     Active Substance: ACEBUTOLOL
     Route: 065
  7. DIACETOLOL [Concomitant]

REACTIONS (10)
  - Bradycardia [Recovered/Resolved]
  - Lactic acidosis [Recovered/Resolved]
  - Hypotension [Recovered/Resolved]
  - Intentional overdose [Recovered/Resolved]
  - Haemodynamic instability [Recovered/Resolved]
  - Coma [Recovered/Resolved]
  - Hypocoagulable state [Recovered/Resolved]
  - Electrocardiogram QT prolonged [Unknown]
  - Toxicity to various agents [Recovered/Resolved]
  - Sinus rhythm [Recovered/Resolved]
